FAERS Safety Report 17930713 (Version 1)
Quarter: 2020Q2

REPORT INFORMATION
  Report Type: Report from Study
  Country: None (occurrence: IL)
  Receive Date: 20200623
  Receipt Date: 20200623
  Transmission Date: 20200714
  Serious: Yes (Hospitalization, Congenital Anomaly, Other)
  Sender: FDA-Public Use
  Company Number: IL-ABBVIE-20K-082-3427537-00

PATIENT
  Age: 84 Year
  Sex: Male
  Weight: 56 kg

DRUGS (13)
  1. BONDORMIN [Concomitant]
     Active Substance: BROTIZOLAM
     Indication: PRODUCT USED FOR UNKNOWN INDICATION
     Dates: start: 20190630
  2. VENETOCLAX. [Suspect]
     Active Substance: VENETOCLAX
     Indication: ACUTE MYELOID LEUKAEMIA
     Dosage: RAMP UP
     Route: 048
     Dates: start: 20200518, end: 20200518
  3. AZACITIDINE. [Suspect]
     Active Substance: AZACITIDINE
     Dosage: CYCLE 1
     Route: 042
     Dates: start: 20200520, end: 20200520
  4. HYDREA [Suspect]
     Active Substance: HYDROXYUREA
     Indication: ACUTE MYELOID LEUKAEMIA
     Route: 048
     Dates: start: 20200506, end: 20200517
  5. MIRO [Concomitant]
     Indication: DEPRESSION
     Dates: start: 20190630
  6. VENETOCLAX. [Suspect]
     Active Substance: VENETOCLAX
     Route: 048
     Dates: start: 20200520, end: 20200614
  7. AZACITIDINE. [Suspect]
     Active Substance: AZACITIDINE
     Dosage: CYCLE 1
     Route: 042
     Dates: start: 20200519, end: 20200519
  8. NEXIUM [Concomitant]
     Active Substance: ESOMEPRAZOLE MAGNESIUM
     Indication: GASTRIC ULCER
     Dates: start: 20200506
  9. AZACITIDINE. [Suspect]
     Active Substance: AZACITIDINE
     Indication: ACUTE MYELOID LEUKAEMIA
     Dosage: CYCLE 1
     Route: 042
     Dates: start: 20200518, end: 20200518
  10. AZACITIDINE. [Suspect]
     Active Substance: AZACITIDINE
     Dosage: CYCLE 1
     Route: 042
     Dates: start: 20200526, end: 20200526
  11. LORIVAN [Concomitant]
     Active Substance: LORAZEPAM
     Indication: ANXIETY
     Dates: start: 20190630
  12. VENETOCLAX. [Suspect]
     Active Substance: VENETOCLAX
     Dosage: RAMP UP
     Route: 048
     Dates: start: 20200519, end: 20200519
  13. AZACITIDINE. [Suspect]
     Active Substance: AZACITIDINE
     Dosage: CYCLE 1
     Route: 042
     Dates: start: 20200521, end: 20200521

REACTIONS (10)
  - Diarrhoea [Recovered/Resolved]
  - Thrombocytopenia [Recovering/Resolving]
  - Wound [Unknown]
  - Monocyte count decreased [Unknown]
  - Haematoma [Recovered/Resolved]
  - Haemolysis [Recovering/Resolving]
  - Neutropenia [Not Recovered/Not Resolved]
  - Pancytopenia [Unknown]
  - Hypokalaemia [Recovering/Resolving]
  - Pyrexia [Recovered/Resolved]

NARRATIVE: CASE EVENT DATE: 2020
